FAERS Safety Report 6972779-6 (Version None)
Quarter: 2010Q3

REPORT INFORMATION
  Report Type: 
  Country: None (occurrence: None)
  Receive Date: 20100909
  Receipt Date: 20100811
  Transmission Date: 20110219
  Serious: No
  Sender: FDA-Public Use
  Company Number: US-PFIZER INC-2010101479

PATIENT
  Sex: Male
  Weight: 86 kg

DRUGS (3)
  1. NORVASC [Suspect]
     Indication: ANGIOPLASTY
     Dosage: 10 MG, 1X/DAY
     Route: 048
     Dates: start: 20070101, end: 20100701
  2. ATENOLOL [Concomitant]
     Indication: CARDIAC DISORDER
     Dosage: UNK
  3. SIMVASTATIN [Concomitant]
     Indication: CARDIAC DISORDER
     Dosage: UNK

REACTIONS (6)
  - AGEUSIA [None]
  - DECREASED APPETITE [None]
  - GINGIVAL BLEEDING [None]
  - GINGIVAL HYPERPLASIA [None]
  - SINUSITIS [None]
  - WEIGHT DECREASED [None]
